FAERS Safety Report 11868681 (Version 1)
Quarter: 2015Q4

REPORT INFORMATION
  Report Type: Spontaneous
  Country: US (occurrence: US)
  Receive Date: 20151225
  Receipt Date: 20151225
  Transmission Date: 20160305
  Serious: No
  Sender: FDA-Public Use
  Company Number: US-AMGEN-USASP2015136762

PATIENT
  Age: 67 Year
  Sex: Female
  Weight: 63.39 kg

DRUGS (1)
  1. ENBREL [Suspect]
     Active Substance: ETANERCEPT
     Indication: RHEUMATOID ARTHRITIS
     Dosage: 50 MG, QWK
     Route: 058
     Dates: end: 20151206

REACTIONS (2)
  - Bursa disorder [Unknown]
  - Foot deformity [Unknown]

NARRATIVE: CASE EVENT DATE: 201512
